FAERS Safety Report 13040134 (Version 1)
Quarter: 2016Q4

REPORT INFORMATION
  Report Type: Spontaneous
  Country: US (occurrence: US)
  Receive Date: 20161219
  Receipt Date: 20161219
  Transmission Date: 20170207
  Serious: Yes (Other)
  Sender: FDA-Public Use
  Company Number: US-BAYER-2016-236195

PATIENT
  Age: 71 Year
  Sex: Female
  Weight: 68.03 kg

DRUGS (11)
  1. TRUBIOTICS CHEWABLE TABLETS [Suspect]
     Active Substance: BIFIDOBACTERIUM LONGUM\LACTOBACILLUS ACIDOPHILUS
     Indication: GASTROINTESTINAL DISORDER
     Dosage: 1 DF, QD WITH A PIECE OF TOAST
     Route: 048
  2. OMEPRAZOLE. [Concomitant]
     Active Substance: OMEPRAZOLE
  3. ALPRAZOLAM. [Concomitant]
     Active Substance: ALPRAZOLAM
  4. VESICARE [Concomitant]
     Active Substance: SOLIFENACIN SUCCINATE
  5. IMODIUM [Concomitant]
     Active Substance: LOPERAMIDE HYDROCHLORIDE
  6. ACETYLSALICYLIC ACID (} 100 MG) [Suspect]
     Active Substance: ASPIRIN
     Indication: ABDOMINAL PAIN UPPER
  7. ATENOLOL. [Concomitant]
     Active Substance: ATENOLOL
  8. CITRACAL + D [CALCIUM CITRATE,COLECALCIFEROL] [Concomitant]
  9. LEVOTHYROXINE. [Concomitant]
     Active Substance: LEVOTHYROXINE
  10. ACETYLSALICYLIC ACID (} 100 MG) [Suspect]
     Active Substance: ASPIRIN
     Indication: PROPHYLAXIS
     Dosage: 3 DF, QD
     Route: 048
     Dates: end: 2015
  11. VENLAFAXINE [Concomitant]
     Active Substance: VENLAFAXINE HYDROCHLORIDE

REACTIONS (2)
  - Product use issue [None]
  - Epistaxis [Recovered/Resolved]
